FAERS Safety Report 25279145 (Version 1)
Quarter: 2025Q2

REPORT INFORMATION
  Report Type: Spontaneous
  Country: US (occurrence: US)
  Receive Date: 20250507
  Receipt Date: 20250507
  Transmission Date: 20250717
  Serious: No
  Sender: NOVARTIS
  Company Number: US-002147023-NVSC2025US073555

PATIENT
  Sex: Female

DRUGS (2)
  1. PROMACTA [Suspect]
     Active Substance: ELTROMBOPAG OLAMINE
     Indication: Thrombocytopenia
     Dosage: 50 MG, QD
     Route: 048
     Dates: start: 202312
  2. ALVAIZ [Concomitant]
     Active Substance: ELTROMBOPAG CHOLINE
     Indication: Product used for unknown indication
     Route: 065

REACTIONS (1)
  - Peripheral swelling [Recovered/Resolved]
